FAERS Safety Report 8228972-8 (Version None)
Quarter: 2012Q1

REPORT INFORMATION
  Report Type: 
  Country: None (occurrence: None)
  Receive Date: 20120322
  Receipt Date: 20120314
  Transmission Date: 20120608
  Serious: Yes (Hospitalization)
  Sender: FDA-Public Use
  Company Number: US-BAYER-2011-072039

PATIENT
  Age: 41 Year
  Sex: Female
  Weight: 86 kg

DRUGS (12)
  1. MESALAMINE [Concomitant]
     Dosage: 4GM/60ML
     Dates: start: 20090428
  2. ASACOL [Concomitant]
     Indication: COLITIS ULCERATIVE
     Dosage: UNK
     Dates: start: 19910101
  3. IBUPROFEN [Concomitant]
     Dosage: 800 MG, UNK
     Dates: start: 20090721, end: 20090727
  4. CLARITHROMYCIN [Concomitant]
     Dosage: 500 MG, UNK
     Dates: start: 20090429
  5. TYLENOL [Concomitant]
     Indication: HEADACHE
     Dosage: UNK
     Dates: start: 20090701
  6. NASONEX [Concomitant]
     Dosage: 500MCG
     Dates: start: 20090429
  7. CHLORPHENIRAMINE W/PSEUDOEPHEDRINE [Concomitant]
     Dosage: 8-120MG
     Dates: start: 20090429
  8. YAZ [Suspect]
     Dosage: UNK
     Dates: start: 20080701, end: 20090701
  9. PROTONIX [Concomitant]
     Indication: GASTROOESOPHAGEAL REFLUX DISEASE
     Dosage: 40 MG
     Dates: start: 20090201, end: 20110701
  10. MOVIPREP [Concomitant]
     Dosage: UNK
     Dates: start: 20090602
  11. PREDNISONE TAB [Concomitant]
  12. PROBIOTICS [Concomitant]

REACTIONS (8)
  - PSYCHOLOGICAL TRAUMA [None]
  - PAIN [None]
  - EMOTIONAL DISTRESS [None]
  - ANXIETY [None]
  - FEAR [None]
  - PULMONARY EMBOLISM [None]
  - DEEP VEIN THROMBOSIS [None]
  - MENTAL DISORDER [None]
